FAERS Safety Report 5368033-9 (Version None)
Quarter: 2007Q2

REPORT INFORMATION
  Report Type: 
  Country: None (occurrence: None)
  Receive Date: 20070622
  Receipt Date: 20070612
  Transmission Date: 20071010
  Serious: Yes (Hospitalization)
  Sender: FDA-Public Use
  Company Number: JP-PFIZER INC-2007048953

PATIENT
  Age: 73 Year
  Sex: Female

DRUGS (10)
  1. NORVASC [Suspect]
     Dosage: DAILY DOSE:5MG
     Route: 048
  2. DIOVAN [Concomitant]
     Route: 048
  3. FAMOTIDINE [Concomitant]
     Route: 048
  4. LIPITOR [Concomitant]
     Route: 048
  5. CABASER [Concomitant]
     Route: 048
  6. MADOPAR [Concomitant]
     Route: 048
  7. PLETAL [Concomitant]
     Route: 048
  8. FERROMIA [Concomitant]
     Route: 048
  9. SYMMETREL [Concomitant]
     Route: 048
  10. WARFARIN [Concomitant]
     Route: 048

REACTIONS (2)
  - ELECTROCARDIOGRAM QT PROLONGED [None]
  - VENTRICULAR TACHYCARDIA [None]
